FAERS Safety Report 19020855 (Version 1)
Quarter: 2021Q1

REPORT INFORMATION
  Report Type: Spontaneous
  Country: GB (occurrence: GB)
  Receive Date: 20210317
  Receipt Date: 20210317
  Transmission Date: 20210420
  Serious: Yes (Other)
  Sender: FDA-Public Use
  Company Number: GB-BAUSCH-BL-2021-008928

PATIENT
  Age: 37 Year
  Sex: Female
  Weight: 78.92 kg

DRUGS (1)
  1. MOVIPREP [Suspect]
     Active Substance: ASCORBIC ACID\POLYETHYLENE GLYCOL 3350\POTASSIUM CHLORIDE\SODIUM ASCORBATE\SODIUM CHLORIDE\SODIUM SULFATE
     Indication: BOWEL PREPARATION
     Route: 048
     Dates: start: 20210301

REACTIONS (8)
  - Fibromyalgia [Unknown]
  - Burning sensation [Recovered/Resolved]
  - Antiphospholipid syndrome [Unknown]
  - Arthritis [Unknown]
  - Erythema [Recovered/Resolved]
  - Lactose intolerance [Unknown]
  - Asthma [Unknown]
  - Psoriasis [Unknown]

NARRATIVE: CASE EVENT DATE: 20210301
